FAERS Safety Report 18733427 (Version 1)
Quarter: 2021Q1

REPORT INFORMATION
  Report Type: Report from Study
  Country: None (occurrence: CA)
  Receive Date: 20210112
  Receipt Date: 20210112
  Transmission Date: 20210419
  Serious: Yes (Other)
  Sender: FDA-Public Use
  Company Number: CA-ABBVIE-21K-028-3723222-00

PATIENT
  Sex: Female

DRUGS (1)
  1. RINVOQ [Suspect]
     Active Substance: UPADACITINIB
     Indication: PRODUCT USED FOR UNKNOWN INDICATION
     Route: 048
     Dates: start: 20200508, end: 2020

REACTIONS (9)
  - Pneumonia [Recovered/Resolved]
  - Cough [Unknown]
  - Lung disorder [Unknown]
  - Paraesthesia [Unknown]
  - Lymphoma [Unknown]
  - Sensation of foreign body [Unknown]
  - Anxiety [Unknown]
  - Fear of disease [Unknown]
  - Pneumonia [Not Recovered/Not Resolved]

NARRATIVE: CASE EVENT DATE: 2020
